FAERS Safety Report 24889985 (Version 1)
Quarter: 2025Q1

REPORT INFORMATION
  Report Type: Spontaneous
  Country: US (occurrence: None)
  Receive Date: 20250124
  Receipt Date: 20250124
  Transmission Date: 20250409
  Serious: No
  Sender: FDA-CTU
  Company Number: None

PATIENT
  Age: 34 Year
  Sex: Female
  Weight: 69.57 kg

DRUGS (1)
  1. IBUPROFEN [Suspect]
     Active Substance: IBUPROFEN
     Dates: start: 20250124, end: 20250124

REACTIONS (3)
  - Abdominal pain upper [None]
  - Abdominal pain upper [None]
  - Bowel movement irregularity [None]

NARRATIVE: CASE EVENT DATE: 20250124
